FAERS Safety Report 7135015-6 (Version None)
Quarter: 2010Q4

REPORT INFORMATION
  Report Type: 
  Country: None (occurrence: None)
  Receive Date: 20101203
  Receipt Date: 20101126
  Transmission Date: 20110411
  Serious: Yes (Hospitalization)
  Sender: FDA-Public Use
  Company Number: FR-MERCK-1011FRA00122

PATIENT
  Age: 78 Year
  Sex: Male

DRUGS (4)
  1. NOROXIN [Suspect]
     Indication: URINARY TRACT INFECTION
     Route: 048
     Dates: start: 20101018, end: 20101024
  2. ACENOCOUMAROL [Suspect]
     Indication: ATRIAL FIBRILLATION
     Route: 048
     Dates: start: 19890101, end: 20101024
  3. DIGOXIN [Concomitant]
     Indication: ATRIAL FIBRILLATION
     Route: 048
  4. PERINDOPRIL ARGININE [Concomitant]
     Indication: HYPERTENSION
     Route: 048

REACTIONS (6)
  - BLOOD PRESSURE SYSTOLIC INCREASED [None]
  - DIVERTICULUM INTESTINAL [None]
  - HAEMORRHAGIC ANAEMIA [None]
  - HAEMORRHOIDS [None]
  - POLYP COLORECTAL [None]
  - RECTAL HAEMORRHAGE [None]
